FAERS Safety Report 19052115 (Version 1)
Quarter: 2021Q1

REPORT INFORMATION
  Report Type: Spontaneous
  Country: DK (occurrence: DK)
  Receive Date: 20210324
  Receipt Date: 20210324
  Transmission Date: 20210420
  Serious: Yes (Other)
  Sender: FDA-Public Use
  Company Number: DK-AMNEAL PHARMACEUTICALS-2021-AMRX-00995

PATIENT
  Age: 78 Year
  Sex: Male

DRUGS (2)
  1. SULFAMETHOXAZOLE AND TRIMETHOPRIM [Suspect]
     Active Substance: SULFAMETHOXAZOLE\TRIMETHOPRIM
     Indication: NOCARDIOSIS
     Dosage: UNK
     Route: 065
     Dates: start: 201811
  2. SULFAMETHOXAZOLE AND TRIMETHOPRIM [Suspect]
     Active Substance: SULFAMETHOXAZOLE\TRIMETHOPRIM
     Indication: ACTINOMYCOSIS

REACTIONS (3)
  - Myelosuppression [Recovered/Resolved]
  - Acute kidney injury [Unknown]
  - Bradycardia [Unknown]

NARRATIVE: CASE EVENT DATE: 2018
